FAERS Safety Report 7985594-1 (Version None)
Quarter: 2011Q4

REPORT INFORMATION
  Report Type: 
  Country: None (occurrence: None)
  Receive Date: 20111216
  Receipt Date: 20111202
  Transmission Date: 20120403
  Serious: Yes (Hospitalization)
  Sender: FDA-Public Use
  Company Number: AU-BRISTOL-MYERS SQUIBB COMPANY-14740419

PATIENT
  Age: 76 Year
  Sex: Male
  Weight: 66 kg

DRUGS (12)
  1. METFORMIN HCL [Concomitant]
     Indication: TYPE 2 DIABETES MELLITUS
     Dates: start: 20080617
  2. BRIVANIB ALANINATE [Suspect]
     Indication: COLORECTAL CANCER METASTATIC
     Dosage: INTERRUPTED ON 29SEP2009
     Route: 048
     Dates: start: 20090805
  3. CARTIA XT [Concomitant]
     Indication: PROPHYLAXIS
     Dates: start: 20071222
  4. PERINDOPRIL ERBUMINE [Concomitant]
     Indication: HYPERTENSION
     Dates: start: 20090210
  5. ATENOLOL [Concomitant]
     Indication: HYPERTENSION
     Dates: start: 20090101
  6. PULMICORT [Concomitant]
     Indication: ASTHMA
     Route: 055
     Dates: start: 20090210
  7. PANTOPRAZOLE [Concomitant]
     Indication: PROPHYLAXIS
     Dates: start: 20090101
  8. MOVIPREP [Concomitant]
     Indication: PROPHYLAXIS
     Dates: start: 20090101
  9. PULMICORT [Concomitant]
     Route: 055
     Dates: start: 20090101
  10. ENOXAPARIN SODIUM [Concomitant]
     Dates: start: 20090101
  11. OXYCONTIN [Concomitant]
     Dates: start: 20090731
  12. CETUXIMAB [Suspect]
     Indication: COLORECTAL CANCER METASTATIC
     Dosage: THERAPY DATES:11SEP09. INTERUPTED ON 14SEP09,25SEP09
     Route: 042
     Dates: start: 20090805

REACTIONS (4)
  - VOMITING [None]
  - DIARRHOEA [None]
  - HYPONATRAEMIA [None]
  - FATIGUE [None]
